FAERS Safety Report 8766656 (Version 2)
Quarter: 2012Q4

REPORT INFORMATION
  Report Type: 
  Country: DE (occurrence: DE)
  Receive Date: 20120904
  Receipt Date: 20120904
  Transmission Date: 20130627
  Serious: Yes (Other)
  Sender: FDA-Public Use
  Company Number: PHHY2012DE063421

PATIENT
  Sex: Female

DRUGS (2)
  1. MYFORTIC [Suspect]
     Indication: PROPHYLAXIS AGAINST TRANSPLANT REJECTION
     Dosage: 540 mg, BID
     Route: 048
     Dates: start: 201110
  2. TACROLIMUS [Concomitant]
     Indication: PROPHYLAXIS AGAINST TRANSPLANT REJECTION
     Dosage: 6 capsules per day
     Route: 048
     Dates: start: 201110

REACTIONS (6)
  - Vesicoureteric reflux [Not Recovered/Not Resolved]
  - Drug level changed [Unknown]
  - Immunosuppressant drug level increased [Recovered/Resolved]
  - Cystitis [Not Recovered/Not Resolved]
  - Urine abnormality [Not Recovered/Not Resolved]
  - Dysuria [Not Recovered/Not Resolved]
